FAERS Safety Report 5947680-7 (Version None)
Quarter: 2008Q4

REPORT INFORMATION
  Report Type: 
  Country: None (occurrence: None)
  Receive Date: 20081111
  Receipt Date: 20081029
  Transmission Date: 20090506
  Serious: Yes (Other)
  Sender: FDA-Public Use
  Company Number: BR-RANBAXY-2008R5-19116

PATIENT

DRUGS (1)
  1. ISOTRETINOINA [Suspect]
     Dosage: UNK
     Route: 048
     Dates: start: 20080813, end: 20081019

REACTIONS (8)
  - ABDOMINAL PAIN [None]
  - BLOOD CHOLESTEROL INCREASED [None]
  - BLOOD TRIGLYCERIDES INCREASED [None]
  - BLOOD URINE PRESENT [None]
  - CHROMATURIA [None]
  - HEADACHE [None]
  - PYREXIA [None]
  - VULVOVAGINAL PAIN [None]
